FAERS Safety Report 24794857 (Version 1)
Quarter: 2024Q4

REPORT INFORMATION
  Report Type: Spontaneous
  Country: CN (occurrence: CN)
  Receive Date: 20241231
  Receipt Date: 20241231
  Transmission Date: 20250114
  Serious: Yes (Hospitalization, Other)
  Sender: GLAXOSMITHKLINE
  Company Number: CN-GSK-CN2024APC163551

PATIENT

DRUGS (4)
  1. LAMOTRIGINE [Suspect]
     Active Substance: LAMOTRIGINE
     Indication: Bipolar disorder
     Dosage: 20 MG, QD, 50MG BID PO
     Route: 048
     Dates: start: 20241022, end: 20241022
  2. QUETIAPINE FUMARATE [Suspect]
     Active Substance: QUETIAPINE FUMARATE
     Indication: Bipolar disorder
     Dosage: 4 G, QD, 0.1G QN PO
     Route: 048
     Dates: start: 20241022, end: 20241022
  3. MAGNESIUM SULFATE [Concomitant]
     Active Substance: MAGNESIUM SULFATE
     Indication: Product used for unknown indication
     Dosage: 50 ML
     Route: 048
  4. SODIUM CHLORIDE [Concomitant]
     Active Substance: SODIUM CHLORIDE
     Indication: Gastric lavage
     Dosage: 6000 ML, QD
     Route: 048

REACTIONS (2)
  - Confusional state [Recovering/Resolving]
  - Hypokalaemia [Recovering/Resolving]

NARRATIVE: CASE EVENT DATE: 20241022
